FAERS Safety Report 5749345-3 (Version None)
Quarter: 2008Q2

REPORT INFORMATION
  Report Type: 
  Country: None (occurrence: None)
  Receive Date: 20080527
  Receipt Date: 20080519
  Transmission Date: 20081010
  Serious: Yes (Other)
  Sender: FDA-Public Use
  Company Number: US-AVENTIS-200813100US

PATIENT
  Age: 79 Year
  Sex: Male

DRUGS (1)
  1. AMARYL [Suspect]
     Dosage: DOSE: UNK

REACTIONS (2)
  - BLOOD GLUCOSE DECREASED [None]
  - ROAD TRAFFIC ACCIDENT [None]
